FAERS Safety Report 18257958 (Version 1)
Quarter: 2020Q3

REPORT INFORMATION
  Report Type: Spontaneous
  Country: US (occurrence: US)
  Receive Date: 20200911
  Receipt Date: 20200911
  Transmission Date: 20201103
  Serious: Yes (Other)
  Sender: FDA-Public Use
  Company Number: None

PATIENT
  Age: 65 Year
  Sex: Female

DRUGS (2)
  1. FLUDROCORTISONE 0.1MG [Concomitant]
     Dates: start: 20150119
  2. HYDROCORTISONE. [Suspect]
     Active Substance: HYDROCORTISONE
     Indication: ADDISON^S DISEASE
     Route: 048
     Dates: start: 20200225, end: 20200911

REACTIONS (3)
  - Drug ineffective [None]
  - Lethargy [None]
  - Dizziness [None]

NARRATIVE: CASE EVENT DATE: 20200225
